FAERS Safety Report 25352536 (Version 2)
Quarter: 2025Q2

REPORT INFORMATION
  Report Type: Spontaneous
  Country: US (occurrence: US)
  Receive Date: 20250523
  Receipt Date: 20250604
  Transmission Date: 20250717
  Serious: No
  Sender: ROCHE
  Company Number: US-ROCHE-10000289924

PATIENT
  Sex: Male
  Weight: 76.66 kg

DRUGS (4)
  1. HEMLIBRA [Suspect]
     Active Substance: EMICIZUMAB-KXWH
     Indication: Factor VIII deficiency
     Dosage: FREQUENCY: ONCE WEEKLY FOR 4 WEEKS AS LOADING DOSE.??STRENGTH:  105MG/.7ML
     Route: 058
     Dates: start: 202505
  2. HEMLIBRA [Suspect]
     Active Substance: EMICIZUMAB-KXWH
     Dosage: FREQUENCY: ONCE WEEKLY FOR 4 WEEKS AS LOADING DOSE.??STRENGTH: 60MG/0.4ML
     Route: 058
     Dates: start: 202505
  3. HEMLIBRA [Suspect]
     Active Substance: EMICIZUMAB-KXWH
     Route: 058
  4. ELOCTATE [Concomitant]
     Active Substance: EFMOROCTOCOG ALFA

REACTIONS (5)
  - Haemorrhage [Unknown]
  - Haemorrhage [Unknown]
  - Swelling [Unknown]
  - Haemorrhage [Unknown]
  - Off label use [Unknown]
